FAERS Safety Report 19361539 (Version 2)
Quarter: 2021Q3

REPORT INFORMATION
  Report Type: Spontaneous
  Country: US (occurrence: US)
  Receive Date: 20210601
  Receipt Date: 20210706
  Transmission Date: 20211014
  Serious: No
  Sender: FDA-Public Use
  Company Number: US-JNJFOC-20210558119

PATIENT
  Age: 6 Decade
  Sex: Female

DRUGS (1)
  1. MENS ROGAINE EXTRA STRENGTH [Suspect]
     Active Substance: MINOXIDIL
     Indication: ALOPECIA
     Dosage: 3 QUARTERS OF A CAP FULL?PRODUCT LAST USED ON 24?MAY?2021
     Route: 061

REACTIONS (3)
  - Off label use [Unknown]
  - Overdose [Unknown]
  - Product use issue [Unknown]
